FAERS Safety Report 12827707 (Version 1)
Quarter: 2016Q4

REPORT INFORMATION
  Report Type: Spontaneous
  Country: RO (occurrence: RO)
  Receive Date: 20161006
  Receipt Date: 20161006
  Transmission Date: 20170207
  Serious: Yes (Death, Hospitalization)
  Sender: FDA-Public Use
  Company Number: RO-ABBVIE-16P-135-1746334-00

PATIENT
  Age: 63 Year
  Sex: Male
  Weight: 80 kg

DRUGS (12)
  1. VIEKIRAX [Suspect]
     Active Substance: OMBITASVIR\PARITAPREVIR\RITONAVIR
     Indication: HEPATITIS C
     Route: 048
     Dates: start: 20160505, end: 20160805
  2. VIEKIRAX [Suspect]
     Active Substance: OMBITASVIR\PARITAPREVIR\RITONAVIR
     Indication: HEPATIC CIRRHOSIS
  3. EXVIERA [Suspect]
     Active Substance: DASABUVIR
     Indication: HEPATITIS C
     Route: 048
     Dates: start: 20160505, end: 20160805
  4. RIBAVIRIN. [Suspect]
     Active Substance: RIBAVIRIN
     Indication: HEPATITIS C
     Route: 048
     Dates: start: 20160505, end: 20160805
  5. CARVEDILOL. [Concomitant]
     Active Substance: CARVEDILOL
     Indication: VARICES OESOPHAGEAL
     Route: 048
     Dates: start: 20160804, end: 20161004
  6. EXVIERA [Suspect]
     Active Substance: DASABUVIR
     Indication: HEPATIC CIRRHOSIS
  7. RIBAVIRIN. [Suspect]
     Active Substance: RIBAVIRIN
     Indication: HEPATIC CIRRHOSIS
  8. UDCA [Concomitant]
     Active Substance: URSODIOL
     Indication: HEPATIC CIRRHOSIS
  9. SILYMARIN [Concomitant]
     Active Substance: MILK THISTLE
     Indication: HEPATITIS C
     Route: 048
     Dates: start: 20160804, end: 20161004
  10. SILYMARIN [Concomitant]
     Active Substance: MILK THISTLE
     Indication: HEPATIC CIRRHOSIS
  11. UDCA [Concomitant]
     Active Substance: URSODIOL
     Indication: HEPATITIS C
     Route: 048
     Dates: start: 20161004, end: 20161004
  12. LANTUS [Concomitant]
     Active Substance: INSULIN GLARGINE
     Indication: TYPE 2 DIABETES MELLITUS
     Route: 058
     Dates: start: 2014, end: 20161004

REACTIONS (3)
  - Upper gastrointestinal haemorrhage [Fatal]
  - Melaena [Not Recovered/Not Resolved]
  - Haematemesis [Not Recovered/Not Resolved]

NARRATIVE: CASE EVENT DATE: 20161003
